FAERS Safety Report 8814078 (Version 1)
Quarter: 2012Q4

REPORT INFORMATION
  Report Type: 
  Country: US (occurrence: US)
  Receive Date: 20120928
  Receipt Date: 20120928
  Transmission Date: 20130627
  Serious: No
  Sender: FDA-Public Use
  Company Number: US-PFIZER INC-2012240180

PATIENT
  Age: 53 Year
  Sex: Female
  Weight: 63.49 kg

DRUGS (2)
  1. LYRICA [Suspect]
     Indication: NEURALGIA
     Dosage: 75 mg, 3x/day
     Dates: start: 20120925
  2. OXYCONTIN [Concomitant]
     Indication: NEURALGIA
     Dosage: UNK

REACTIONS (1)
  - Weight increased [Unknown]
